FAERS Safety Report 19260655 (Version 5)
Quarter: 2021Q4

REPORT INFORMATION
  Report Type: Report from Study
  Country: None (occurrence: US)
  Receive Date: 20210514
  Receipt Date: 20211015
  Transmission Date: 20220303
  Serious: Yes (Hospitalization)
  Sender: FDA-Public Use
  Company Number: US-ABBVIE-21P-163-3897897-00

PATIENT
  Age: 18 Year
  Sex: Female
  Weight: 55.1 kg

DRUGS (18)
  1. VENETOCLAX [Suspect]
     Active Substance: VENETOCLAX
     Indication: Refractory cancer
     Route: 048
     Dates: start: 20210408, end: 20210408
  2. VENETOCLAX [Suspect]
     Active Substance: VENETOCLAX
     Indication: Recurrent cancer
     Route: 048
     Dates: start: 20210409, end: 20210409
  3. VENETOCLAX [Suspect]
     Active Substance: VENETOCLAX
     Route: 048
     Dates: start: 20210410, end: 20210504
  4. VENETOCLAX [Suspect]
     Active Substance: VENETOCLAX
     Route: 048
     Dates: start: 20210616, end: 20210706
  5. PREDNISONE [Suspect]
     Active Substance: PREDNISONE
     Indication: Recurrent cancer
     Route: 048
     Dates: start: 20210411
  6. PREDNISONE [Suspect]
     Active Substance: PREDNISONE
     Indication: Recurrent cancer
  7. VINCRISTINE [Suspect]
     Active Substance: VINCRISTINE
     Indication: Recurrent cancer
     Route: 042
     Dates: start: 20210411
  8. VINCRISTINE [Suspect]
     Active Substance: VINCRISTINE
     Indication: Recurrent cancer
  9. PEGASPARGASE [Suspect]
     Active Substance: PEGASPARGASE
     Indication: Recurrent cancer
     Route: 042
     Dates: start: 20210414
  10. PEGASPARGASE [Suspect]
     Active Substance: PEGASPARGASE
     Indication: Recurrent cancer
  11. LOVENOX [Concomitant]
     Active Substance: ENOXAPARIN SODIUM
     Indication: Deep vein thrombosis
     Route: 058
     Dates: start: 20210415
  12. CRESEMBA [Concomitant]
     Active Substance: ISAVUCONAZONIUM SULFATE
     Indication: Infection prophylaxis
     Route: 048
     Dates: start: 20210324
  13. CRESEMBA [Concomitant]
     Active Substance: ISAVUCONAZONIUM SULFATE
     Indication: Pleural effusion
  14. CRESEMBA [Concomitant]
     Active Substance: ISAVUCONAZONIUM SULFATE
     Indication: Aspergillus infection
  15. AYGESTIN [Concomitant]
     Active Substance: NORETHINDRONE ACETATE
     Indication: Prophylaxis
     Route: 048
     Dates: start: 20210417
  16. INSULIN NOS [Concomitant]
     Active Substance: INSULIN NOS
     Indication: Diabetes mellitus
     Dosage: 100 UNITS/ML
     Route: 058
     Dates: start: 20210303
  17. DEXTROSE [Concomitant]
     Active Substance: DEXTROSE
     Indication: Prophylaxis
     Route: 042
     Dates: start: 20210408, end: 20210416
  18. ENOXAPARIN SODIUM [Concomitant]
     Active Substance: ENOXAPARIN SODIUM
     Indication: Deep vein thrombosis
     Route: 058
     Dates: start: 20210310

REACTIONS (4)
  - Meningitis [Not Recovered/Not Resolved]
  - Bacteraemia [Recovered/Resolved]
  - Neutrophil count decreased [Not Recovered/Not Resolved]
  - Seizure [Recovered/Resolved]

NARRATIVE: CASE EVENT DATE: 20210504
